FAERS Safety Report 5541640-6 (Version None)
Quarter: 2007Q4

REPORT INFORMATION
  Report Type: 
  Country: None (occurrence: None)
  Receive Date: 20071210
  Receipt Date: 20071130
  Transmission Date: 20080405
  Serious: Yes (Death)
  Sender: FDA-Public Use
  Company Number: B0498916A

PATIENT
  Age: 29 Year
  Sex: Male

DRUGS (2)
  1. SOLPADEINE [Suspect]
     Route: 065
  2. ALCOHOL [Suspect]
     Route: 065

REACTIONS (2)
  - CARDIAC ARREST [None]
  - RESPIRATORY FAILURE [None]
